FAERS Safety Report 11108808 (Version 2)
Quarter: 2015Q2

REPORT INFORMATION
  Report Type: Spontaneous
  Country: FR (occurrence: FR)
  Receive Date: 20150513
  Receipt Date: 20150515
  Transmission Date: 20150821
  Serious: Yes (Hospitalization)
  Sender: FDA-Public Use
  Company Number: FR-AUROBINDO-AUR-APL-2015-04058

PATIENT
  Age: 50 Year
  Sex: Female

DRUGS (3)
  1. ALCOHOL. [Concomitant]
     Active Substance: ALCOHOL
     Indication: PRODUCT USED FOR UNKNOWN INDICATION
     Dosage: UNK
     Route: 048
  2. TRAMADOL [Interacting]
     Active Substance: TRAMADOL
     Indication: PRODUCT USED FOR UNKNOWN INDICATION
     Dosage: 39 G, UNK
     Route: 048
  3. ALPRAZOLAM. [Suspect]
     Active Substance: ALPRAZOLAM
     Indication: PRODUCT USED FOR UNKNOWN INDICATION
     Dosage: 15 G, UNK
     Route: 048

REACTIONS (15)
  - Atrioventricular block [Recovering/Resolving]
  - Condition aggravated [Recovering/Resolving]
  - Conduction disorder [Recovering/Resolving]
  - Cyanosis [Recovering/Resolving]
  - Drug interaction [Recovering/Resolving]
  - Ventricular tachycardia [Recovering/Resolving]
  - Partial seizures [Recovering/Resolving]
  - Cardiogenic shock [Recovering/Resolving]
  - Mydriasis [Recovering/Resolving]
  - Overdose [Recovering/Resolving]
  - Somnolence [Recovering/Resolving]
  - Respiratory arrest [Recovering/Resolving]
  - Epilepsy [Recovering/Resolving]
  - Ejection fraction decreased [Recovering/Resolving]
  - Toxicity to various agents [Recovering/Resolving]
